FAERS Safety Report 20978793 (Version 1)
Quarter: 2022Q2

REPORT INFORMATION
  Report Type: Spontaneous
  Country: ES (occurrence: ES)
  Receive Date: 20220619
  Receipt Date: 20220619
  Transmission Date: 20220721
  Serious: Yes (Hospitalization)
  Sender: FDA-Public Use
  Company Number: None

PATIENT
  Age: 34 Year
  Sex: Male

DRUGS (3)
  1. PALIPERIDONE [Suspect]
     Active Substance: PALIPERIDONE
     Indication: Schizophrenia
     Dosage: 1.0 PREC SYR W/3 MONTHS, PALIPERIDONE (8094A)
     Route: 065
     Dates: start: 20220518
  2. OMEPRAZOLE PENSA [Concomitant]
     Indication: Neurosis
     Dosage: 20.0 MG A-DE, STRENGTH 20MG, 56 CAPSULES
     Route: 048
     Dates: start: 20220427
  3. ESCITALOPRAM MEIJI [Concomitant]
     Indication: Schizophrenia
     Dosage: 10.0MG DE, STRENGTH 10MG, 56 TABLETS
     Route: 048
     Dates: start: 20220112

REACTIONS (2)
  - Positron emission tomogram [Recovering/Resolving]
  - Deep vein thrombosis [Recovering/Resolving]

NARRATIVE: CASE EVENT DATE: 20220520
